FAERS Safety Report 14422426 (Version 2)
Quarter: 2018Q1

REPORT INFORMATION
  Report Type: Report from Study
  Country: US (occurrence: US)
  Receive Date: 20180123
  Receipt Date: 20180201
  Transmission Date: 20180509
  Serious: Yes (Hospitalization)
  Sender: FDA-Public Use
  Company Number: US-BIOGEN-2018BI00510353

PATIENT
  Age: 38 Year
  Sex: Female

DRUGS (4)
  1. AVONEX [Suspect]
     Active Substance: INTERFERON BETA-1A
     Route: 065
     Dates: end: 20140121
  2. AVONEX [Suspect]
     Active Substance: INTERFERON BETA-1A
     Dosage: 30 MCG/0.5 ML
     Route: 030
     Dates: start: 20130524
  3. AVONEX [Suspect]
     Active Substance: INTERFERON BETA-1A
     Dosage: 30 MCG/0.5 ML
     Route: 030
     Dates: end: 20160419
  4. AVONEX [Suspect]
     Active Substance: INTERFERON BETA-1A
     Indication: MULTIPLE SCLEROSIS
     Route: 065
     Dates: start: 20130412

REACTIONS (3)
  - Aphasia [Unknown]
  - Multiple sclerosis relapse [Recovered/Resolved]
  - Fatigue [Unknown]

NARRATIVE: CASE EVENT DATE: 20140425
